FAERS Safety Report 9722446 (Version 1)
Quarter: 2013Q4

REPORT INFORMATION
  Report Type: Spontaneous
  Country: IT (occurrence: IT)
  Receive Date: 20131202
  Receipt Date: 20131202
  Transmission Date: 20140711
  Serious: Yes (Hospitalization)
  Sender: FDA-Public Use
  Company Number: PHHY2013IT138223

PATIENT
  Sex: Female

DRUGS (2)
  1. TEGRETOL [Suspect]
     Indication: INTENTIONAL SELF-INJURY
     Dosage: 14 DF, TOTAL
     Route: 048
     Dates: start: 20131025, end: 20131025
  2. GARDENALE [Suspect]
     Indication: INTENTIONAL SELF-INJURY
     Dosage: 7 DF, TOTAL
     Route: 048
     Dates: start: 20131025, end: 20131025

REACTIONS (2)
  - Sopor [Not Recovered/Not Resolved]
  - Toxicity to various agents [Not Recovered/Not Resolved]
